FAERS Safety Report 5789209-2 (Version None)
Quarter: 2008Q2

REPORT INFORMATION
  Report Type: 
  Country: None (occurrence: None)
  Receive Date: 20080626
  Receipt Date: 20080604
  Transmission Date: 20081010
  Serious: Yes (Other)
  Sender: FDA-Public Use
  Company Number: GB-ASTRAZENECA-2008SE03215

PATIENT
  Sex: Female

DRUGS (6)
  1. AMIAS 16MG TABLETS [Suspect]
     Indication: HYPERTENSION
     Route: 065
     Dates: start: 20071201
  2. AMIAS 16MG TABLETS [Suspect]
     Route: 065
  3. AMIAS 16MG TABLETS [Suspect]
     Route: 065
  4. METFORMIN HCL [Concomitant]
     Indication: DIABETES MELLITUS
     Route: 048
  5. EZETROL [Concomitant]
     Indication: BLOOD CHOLESTEROL
     Route: 048
  6. MENOPACE [Concomitant]
     Indication: MENOPAUSAL SYMPTOMS
     Route: 065

REACTIONS (6)
  - DIZZINESS [None]
  - HYPOAESTHESIA FACIAL [None]
  - LOCAL SWELLING [None]
  - NAUSEA [None]
  - SWELLING FACE [None]
  - SWOLLEN TONGUE [None]
